FAERS Safety Report 8497687-3 (Version None)
Quarter: 2012Q3

REPORT INFORMATION
  Report Type: 
  Country: None (occurrence: None)
  Receive Date: 20120709
  Receipt Date: 20120613
  Transmission Date: 20120928
  Serious: No
  Sender: FDA-Public Use
  Company Number: US-AMGEN-USASP2012029070

PATIENT
  Sex: Female

DRUGS (2)
  1. ENBREL [Suspect]
     Indication: RHEUMATOID ARTHRITIS
     Dosage: 50 MG, QWK
     Dates: start: 20120506
  2. TREXALL [Concomitant]
     Dosage: 4 MG, QWK
     Dates: start: 20110101

REACTIONS (6)
  - HERNIA [None]
  - WALKING AID USER [None]
  - SLEEP APNOEA SYNDROME [None]
  - PAIN IN EXTREMITY [None]
  - DRUG INEFFECTIVE [None]
  - VIRAL INFECTION [None]
